FAERS Safety Report 14077525 (Version 2)
Quarter: 2017Q4

REPORT INFORMATION
  Report Type: Spontaneous
  Country: US (occurrence: US)
  Receive Date: 20171012
  Receipt Date: 20171025
  Transmission Date: 20180321
  Serious: Yes (Life-Threatening, Hospitalization, Other)
  Sender: FDA-Public Use
  Company Number: US-WEST-WARD PHARMACEUTICALS CORP.-US-H14001-17-03737

PATIENT
  Age: 64 Year
  Sex: Female

DRUGS (5)
  1. ETOPOSIDE/VP16 [Concomitant]
     Indication: LUNG ADENOCARCINOMA
  2. CARBOPLATIN. [Concomitant]
     Active Substance: CARBOPLATIN
     Indication: LUNG ADENOCARCINOMA
  3. OXYCODONE [Suspect]
     Active Substance: OXYCODONE
     Indication: BACK PAIN
     Route: 065
  4. ETOPOSIDE/VP16 [Concomitant]
     Indication: SMALL CELL LUNG CANCER
     Route: 065
  5. CARBOPLATIN. [Concomitant]
     Active Substance: CARBOPLATIN
     Indication: SMALL CELL LUNG CANCER
     Route: 065

REACTIONS (6)
  - Megacolon [Recovered/Resolved]
  - Constipation [Recovered/Resolved]
  - Serositis [Recovered/Resolved]
  - Colitis [Recovered/Resolved]
  - Large intestinal ulcer perforation [Recovered/Resolved]
  - Retroperitoneal abscess [Recovered/Resolved]
